FAERS Safety Report 18376580 (Version 1)
Quarter: 2020Q4

REPORT INFORMATION
  Report Type: Spontaneous
  Country: FR (occurrence: FR)
  Receive Date: 20201013
  Receipt Date: 20201013
  Transmission Date: 20210114
  Serious: Yes (Life-Threatening, Hospitalization)
  Sender: FDA-Public Use
  Company Number: FR-TEVA-2020-FR-1836976

PATIENT
  Age: 63 Year
  Sex: Female
  Weight: 75.8 kg

DRUGS (13)
  1. CHOLECALCIFEROL [Concomitant]
     Active Substance: CHOLECALCIFEROL
  2. LANSOPRAZOLE. [Suspect]
     Active Substance: LANSOPRAZOLE
     Indication: GASTROOESOPHAGEAL REFLUX DISEASE
     Dosage: 30MILLIGRAM
     Route: 048
  3. TWYNSTA [Interacting]
     Active Substance: AMLODIPINE BESYLATE\TELMISARTAN
     Indication: HYPERTENSION
     Dosage: 1DOSAGEFORM
     Route: 048
  4. CORDARONE [Interacting]
     Active Substance: AMIODARONE HYDROCHLORIDE
     Indication: ATRIAL FIBRILLATION
     Dosage: 900MILLIGRAM:SCORED TABLET
     Route: 048
     Dates: start: 20200727
  5. LANSOPRAZOLE. [Concomitant]
     Active Substance: LANSOPRAZOLE
     Indication: GASTROOESOPHAGEAL REFLUX DISEASE
     Dosage: 30MILLIGRAM
     Route: 048
  6. ROSUVASTATINE [Concomitant]
     Active Substance: ROSUVASTATIN
  7. JANUMET [Concomitant]
     Active Substance: METFORMIN HYDROCHLORIDE\SITAGLIPTIN PHOSPHATE
  8. ASPEGIC ADULTES 1000 MG, POUDRE POUR SOLUTION BUVABLE EN SACHET-DOSE [Interacting]
     Active Substance: ASPIRIN DL-LYSINE
     Indication: PERICARDITIS
     Dosage: 3000MILLIGRAM:POWDER FOR ORAL SOLUTION IN SACHET-DOSE
     Route: 048
     Dates: start: 20200724, end: 20200807
  9. XARELTO [Interacting]
     Active Substance: RIVAROXABAN
     Indication: ATRIAL FIBRILLATION
     Dosage: 15MILLIGRAM
     Route: 048
     Dates: start: 20200813, end: 20200817
  10. ELIQUIS [Interacting]
     Active Substance: APIXABAN
     Indication: ATRIAL FIBRILLATION
     Dosage: 10MILLIGRAM
     Route: 048
     Dates: start: 20200727, end: 20200805
  11. COLCHICINE. [Concomitant]
     Active Substance: COLCHICINE
  12. METFORMINE [Concomitant]
     Active Substance: METFORMIN HYDROCHLORIDE
  13. BISOPROLOL (FUMARATE ACIDE DE) [Concomitant]
     Active Substance: BISOPROLOL FUMARATE

REACTIONS (3)
  - Condition aggravated [Recovered/Resolved]
  - Drug interaction [Unknown]
  - Pericardial effusion [Recovered/Resolved]

NARRATIVE: CASE EVENT DATE: 20200805
